FAERS Safety Report 7179467-4 (Version None)
Quarter: 2010Q4

REPORT INFORMATION
  Report Type: 
  Country: None (occurrence: None)
  Receive Date: 20101209
  Receipt Date: 20101126
  Transmission Date: 20110411
  Serious: Yes (Hospitalization)
  Sender: FDA-Public Use
  Company Number: 2010AP002535

PATIENT
  Age: 43 Year
  Sex: Male

DRUGS (2)
  1. OMEPRAZOLE [Suspect]
     Indication: GASTROOESOPHAGEAL REFLUX DISEASE
     Dosage: 20 MG; PO
     Route: 048
     Dates: start: 20101020, end: 20101025
  2. RAMIPRIL [Concomitant]

REACTIONS (1)
  - RASH ERYTHEMATOUS [None]
